FAERS Safety Report 25502975 (Version 1)
Quarter: 2025Q3

REPORT INFORMATION
  Report Type: Spontaneous
  Country: US (occurrence: US)
  Receive Date: 20250702
  Receipt Date: 20250702
  Transmission Date: 20251020
  Serious: No
  Sender: LYNE LABORATORIES
  Company Number: US-Lyne Laboratories Inc.-2179754

PATIENT
  Sex: Male

DRUGS (8)
  1. NYSTATIN [Suspect]
     Active Substance: NYSTATIN
     Indication: Rash
  2. ZINC OXIDE [Suspect]
     Active Substance: ZINC OXIDE
  3. MONISTAT [Suspect]
     Active Substance: MICONAZOLE NITRATE
  4. AQUAPHOR [Suspect]
     Active Substance: PETROLATUM
  5. HYDROCORTISONE [Suspect]
     Active Substance: HYDROCORTISONE
  6. HERBALS\HONEY [Suspect]
     Active Substance: HERBALS\HONEY
  7. CALMOSEPTINE [Suspect]
     Active Substance: MENTHOL\ZINC OXIDE
  8. CLOBETASOL PROPIONATE [Suspect]
     Active Substance: CLOBETASOL PROPIONATE

REACTIONS (1)
  - Drug ineffective [Unknown]
